FAERS Safety Report 21668803 (Version 1)
Quarter: 2022Q4

REPORT INFORMATION
  Report Type: Spontaneous
  Country: CN (occurrence: CN)
  Receive Date: 20221201
  Receipt Date: 20221201
  Transmission Date: 20230113
  Serious: Yes (Other)
  Sender: FDA-Public Use
  Company Number: CN-009507513-2211CHN008814

PATIENT
  Age: 60 Year
  Sex: Male
  Weight: 83 kg

DRUGS (6)
  1. KEYTRUDA [Suspect]
     Active Substance: PEMBROLIZUMAB
     Indication: Sarcomatoid carcinoma of the lung
     Dosage: 100 MILLIGRAM, EVERY 21 DAYS (Q3W)
     Route: 041
     Dates: start: 20221015, end: 20221015
  2. ERTAPENEM SODIUM [Suspect]
     Active Substance: ERTAPENEM SODIUM
  3. MOXIFLOXACIN [Suspect]
     Active Substance: MOXIFLOXACIN
     Dosage: 30 MILLIGRAM, QD
     Dates: start: 20221027
  4. PREDNISONE [Suspect]
     Active Substance: PREDNISONE
     Dosage: 30 MILLIGRAM, QD
     Dates: start: 20221027
  5. PARAPLATIN [Concomitant]
     Active Substance: CARBOPLATIN
     Indication: Sarcomatoid carcinoma of the lung
     Dosage: 500 MILLIGRAM, EVERY 21 DAYS (Q3W)
     Route: 041
     Dates: start: 20221015, end: 20221015
  6. PACLITAXEL [Concomitant]
     Active Substance: PACLITAXEL
     Indication: Sarcomatoid carcinoma of the lung
     Dosage: 300 MILLIGRAM, EVERY 21 DAYS (Q3W)
     Route: 041
     Dates: start: 20221015, end: 20221015

REACTIONS (10)
  - Cytokine storm [Unknown]
  - Pyrexia [Recovering/Resolving]
  - Pyrexia [Unknown]
  - Cough [Unknown]
  - Sputum discoloured [Unknown]
  - Interleukin level increased [Unknown]
  - C-reactive protein increased [Unknown]
  - Drug ineffective [Unknown]
  - Drug ineffective [Unknown]
  - Underdose [Unknown]

NARRATIVE: CASE EVENT DATE: 20221001
